FAERS Safety Report 4847319-8 (Version None)
Quarter: 2005Q4

REPORT INFORMATION
  Report Type: 
  Country: None (occurrence: None)
  Receive Date: 20051207
  Receipt Date: 20051201
  Transmission Date: 20060501
  Serious: Yes (Hospitalization)
  Sender: FDA-Public Use
  Company Number: US-BRISTOL-MYERS SQUIBB COMPANY-13201686

PATIENT
  Age: 68 Year
  Sex: Female
  Weight: 46 kg

DRUGS (9)
  1. CETUXIMAB [Suspect]
     Indication: OESOPHAGEAL CARCINOMA
     Dosage: INITIATED ON 16-SEP-2005 AT 400 MG/M2 WITH SUBSEQUENT DOSES OF 250 MG/M2.
     Route: 042
     Dates: start: 20051028, end: 20051028
  2. CISPLATIN [Suspect]
     Indication: OESOPHAGEAL CARCINOMA
     Dosage: INITIATED ON 23-SEP-2005.
     Route: 042
     Dates: start: 20051021, end: 20051021
  3. IRINOTECAN [Suspect]
     Indication: OESOPHAGEAL CARCINOMA
     Dosage: INITIATED 23-SEP-2005.  DOSE REDUCED TO 50 MG/M2 AFTER SIX WEEKS DUE TO GRADE 3 DIARRHEA.
     Route: 042
     Dates: start: 20051021, end: 20051021
  4. RADIATION THERAPY [Suspect]
     Indication: OESOPHAGEAL CARCINOMA
     Dosage: INITIATED ON 19-SEP-2005. 180 GCY ADMINISTERED D1-5, WEEK 2-7.
     Dates: start: 20051028, end: 20051028
  5. ATENOLOL [Concomitant]
  6. HYDROCHLOROTHIAZIDE [Concomitant]
  7. IMODIUM [Concomitant]
  8. TRIAMTERENE [Concomitant]
  9. ZOFRAN [Concomitant]

REACTIONS (7)
  - ASTHENIA [None]
  - DEHYDRATION [None]
  - DIARRHOEA [None]
  - HYPOKALAEMIA [None]
  - LEUKOPENIA [None]
  - NAUSEA [None]
  - VOMITING [None]
